FAERS Safety Report 5817822-2 (Version None)
Quarter: 2008Q3

REPORT INFORMATION
  Report Type: 
  Country: None (occurrence: None)
  Receive Date: 20080722
  Receipt Date: 20080715
  Transmission Date: 20090109
  Serious: Yes (Death, Hospitalization)
  Sender: FDA-Public Use
  Company Number: LB-AVENTIS-200813702GDDC

PATIENT
  Age: 68 Year
  Sex: Male
  Weight: 95 kg

DRUGS (2)
  1. TAXOTERE [Suspect]
     Route: 042
     Dates: start: 20080415, end: 20080415
  2. BEVACIZUMAB [Suspect]
     Route: 042

REACTIONS (2)
  - INTERSTITIAL LUNG DISEASE [None]
  - RESPIRATORY FAILURE [None]
